FAERS Safety Report 17144501 (Version 3)
Quarter: 2020Q3

REPORT INFORMATION
  Report Type: Report from Study
  Country: US (occurrence: US)
  Receive Date: 20191212
  Receipt Date: 20200915
  Transmission Date: 20201102
  Serious: Yes (Hospitalization, Other)
  Sender: FDA-Public Use
  Company Number: US-ROCHE-2427240

PATIENT
  Age: 57 Year
  Sex: Female
  Weight: 113 kg

DRUGS (9)
  1. BACTRIM DS [Concomitant]
     Active Substance: SULFAMETHOXAZOLE\TRIMETHOPRIM
  2. LORAZEPAM. [Concomitant]
     Active Substance: LORAZEPAM
  3. ONDANSETRON [Concomitant]
     Active Substance: ONDANSETRON
  4. OBINUTUZUMAB. [Suspect]
     Active Substance: OBINUTUZUMAB
     Indication: CHRONIC LYMPHOCYTIC LEUKAEMIA
     Dosage: ON DAY 1, CYCLE 1?DOSES RECEIVED ON 04/SEP/2019 (1000 MG) AND MOST RECENT DOSE ON 24/OCT/2019, RECEI
     Route: 042
     Dates: start: 20190710
  5. VENETOCLAX. [Suspect]
     Active Substance: VENETOCLAX
     Indication: CHRONIC LYMPHOCYTIC LEUKAEMIA
     Dosage: ON DAY 1, CYCLE 1?DOSES RECEIVED ON 16/SEP/2019 (2610 MG) AND MOST RECENT DOSE ON 24/OCT/2019, RECEI
     Route: 065
     Dates: start: 20190710
  6. ACYCLOVIR. [Concomitant]
     Active Substance: ACYCLOVIR
  7. IBRUTINIB [Suspect]
     Active Substance: IBRUTINIB
     Indication: CHRONIC LYMPHOCYTIC LEUKAEMIA
     Dosage: ON DAY 1, CYCLE 1?DOSES RECEIVED ON 16/SEP/2019 (10080 MG) AND MOST RECENT DOSE ON 02/OCT/2019, RECE
     Route: 048
     Dates: start: 20190710
  8. ALLOPURINOL. [Concomitant]
     Active Substance: ALLOPURINOL
  9. HYDROCHLOROTHIAZIDE. [Concomitant]
     Active Substance: HYDROCHLOROTHIAZIDE

REACTIONS (6)
  - Atrial fibrillation [Recovered/Resolved with Sequelae]
  - Hypertension [Recovered/Resolved with Sequelae]
  - Hypertension [Recovered/Resolved]
  - Non-cardiac chest pain [Recovered/Resolved with Sequelae]
  - Hypertension [Recovered/Resolved]
  - Neutrophil count decreased [Recovered/Resolved with Sequelae]

NARRATIVE: CASE EVENT DATE: 20190916
